FAERS Safety Report 5834259-0 (Version None)
Quarter: 2008Q3

REPORT INFORMATION
  Report Type: 
  Country: None (occurrence: None)
  Receive Date: 20080805
  Receipt Date: 20080728
  Transmission Date: 20090109
  Serious: Yes (Hospitalization)
  Sender: FDA-Public Use
  Company Number: PHBS2008CA05228

PATIENT
  Age: 62 Year
  Sex: Female

DRUGS (1)
  1. CLOZAPINE [Suspect]
     Indication: BIPOLAR DISORDER
     Dosage: 400 MG/DAY
     Route: 065
     Dates: start: 20061124

REACTIONS (12)
  - ABDOMINAL DISCOMFORT [None]
  - ABSCESS INTESTINAL [None]
  - BLOOD POTASSIUM DECREASED [None]
  - BLOOD SODIUM INCREASED [None]
  - COLITIS [None]
  - COLONOSCOPY ABNORMAL [None]
  - DEHYDRATION [None]
  - DIARRHOEA [None]
  - ELECTROLYTE IMBALANCE [None]
  - INFLAMMATION [None]
  - LARGE INTESTINAL ULCER [None]
  - VOMITING [None]
